FAERS Safety Report 17108240 (Version 2)
Quarter: 2020Q2

REPORT INFORMATION
  Report Type: Spontaneous
  Country: US (occurrence: US)
  Receive Date: 20191204
  Receipt Date: 20200402
  Transmission Date: 20200713
  Serious: No
  Sender: FDA-Public Use
  Company Number: US-UCBSA-2017042209

PATIENT
  Sex: Female

DRUGS (2)
  1. NEUPRO [Suspect]
     Active Substance: ROTIGOTINE
     Indication: RESTLESS LEGS SYNDROME
     Dosage: 2 MG, UNK
  2. NEUPRO [Suspect]
     Active Substance: ROTIGOTINE
     Dosage: 1 MG, UNK

REACTIONS (2)
  - Pruritus [Unknown]
  - Drug ineffective [Unknown]
